FAERS Safety Report 5340285-0 (Version None)
Quarter: 2007Q2

REPORT INFORMATION
  Report Type: 
  Country: None (occurrence: None)
  Receive Date: 20070405
  Receipt Date: 20061228
  Transmission Date: 20071010
  Serious: Yes (Other)
  Sender: FDA-Public Use
  Company Number: US200612001467

PATIENT
  Age: 42 Year
  Sex: Female

DRUGS (2)
  1. CYMBALTA [Suspect]
     Indication: MAJOR DEPRESSION
     Dosage: 30 MG, ORAL
     Route: 048
     Dates: start: 20061010, end: 20061015
  2. ZOLOFT [Concomitant]

REACTIONS (4)
  - DEPRESSION [None]
  - DIARRHOEA [None]
  - HYPERSOMNIA [None]
  - SUICIDAL IDEATION [None]
